FAERS Safety Report 8461608-X (Version None)
Quarter: 2012Q2

REPORT INFORMATION
  Report Type: 
  Country: None (occurrence: None)
  Receive Date: 20120323
  Receipt Date: 20111006
  Transmission Date: 20120825
  Serious: Yes (Other)
  Sender: FDA-Public Use
  Company Number: 163-21880-11100911

PATIENT
  Age: 61 Year
  Sex: Male
  Weight: 87.0906 kg

DRUGS (9)
  1. MULTIVITAMIN [Concomitant]
  2. LYRICA [Concomitant]
  3. ZOMETA [Concomitant]
  4. ZOFRAN [Concomitant]
  5. REVLIMID [Suspect]
     Indication: MULTIPLE MYELOMA
     Dosage: 10 MG, DAILY FOR 21 DAYS, PO
     Route: 048
     Dates: start: 20110921, end: 20111011
  6. ACYCLOVIR [Concomitant]
  7. AMLODIPINE [Concomitant]
  8. SINGULAIR [Concomitant]
  9. LOVAZA [Concomitant]

REACTIONS (1)
  - DERMATITIS BULLOUS [None]
